FAERS Safety Report 20696950 (Version 1)
Quarter: 2022Q2

REPORT INFORMATION
  Report Type: Spontaneous
  Country: US (occurrence: US)
  Receive Date: 20220411
  Receipt Date: 20220411
  Transmission Date: 20220721
  Serious: No
  Sender: FDA-Public Use
  Company Number: US-Fresenius Medical Care Renal Therapies Group-FMC-2203-000431

PATIENT
  Sex: Female

DRUGS (2)
  1. DELFLEX WITH DEXTROSE 2.5% LOW MAGNESIUM LOW CALCIUM [Suspect]
     Active Substance: CALCIUM CHLORIDE\DEXTROSE\MAGNESIUM CHLORIDE\SODIUM CHLORIDE\SODIUM LACTATE
     Indication: End stage renal disease
     Dosage: TX BASED; FILLS= 7; DWT= 1 HR. 4 MIN; TV=14,500ML; TST= 9 HR.; PAUSES= 0; PV= N/A; FFV= 2,500ML; TFV
     Route: 033
  2. DELFLEX WITH DEXTROSE 1.5% LOW MAGNESIUM LOW CALCIUM [Suspect]
     Active Substance: CALCIUM CHLORIDE\DEXTROSE\MAGNESIUM CHLORIDE\SODIUM CHLORIDE\SODIUM LACTATE
     Indication: End stage renal disease
     Dosage: TX BASED; FILLS= 7; DWT= 1 HR. 4 MIN; TV=14,500ML; TST= 9 HR.; PAUSES= 0; PV= N/A; FFV= 2,500ML; TFV
     Route: 033

REACTIONS (1)
  - Peripheral swelling [Recovering/Resolving]
